FAERS Safety Report 9074938 (Version 1)
Quarter: 2013Q1

REPORT INFORMATION
  Report Type: Report from Study
  Country: US (occurrence: US)
  Receive Date: 20130129
  Receipt Date: 20130129
  Transmission Date: 20140127
  Serious: No
  Sender: FDA-Public Use
  Company Number: US-ABBOTT-12P-163-0921679-00

PATIENT
  Age: 61 Year
  Sex: Female

DRUGS (9)
  1. HUMIRA 40 MG/0.8 ML PEN [Suspect]
     Indication: PSORIATIC ARTHROPATHY
     Dates: start: 20111220
  2. ELMIRON [Concomitant]
     Indication: CYSTITIS INTERSTITIAL
     Dosage: 100MG 2 CAPSULES TWICE DAILY
  3. ELMIRON [Concomitant]
     Indication: BLADDER DISORDER
  4. BUPROPION [Concomitant]
     Indication: DEPRESSION
  5. CYMBALTA [Concomitant]
     Indication: DEPRESSION
  6. LYRICA [Concomitant]
     Indication: PRODUCT USED FOR UNKNOWN INDICATION
  7. CLONAZEPAM [Concomitant]
     Indication: ANXIETY
  8. HYDROXYZINE [Concomitant]
     Indication: PSORIASIS
  9. HYDROXYZINE [Concomitant]
     Indication: PRURITUS

REACTIONS (1)
  - Injection site pain [Not Recovered/Not Resolved]
